FAERS Safety Report 8189859-2 (Version None)
Quarter: 2012Q1

REPORT INFORMATION
  Report Type: 
  Country: None (occurrence: None)
  Receive Date: 20120307
  Receipt Date: 20111230
  Transmission Date: 20120608
  Serious: No
  Sender: FDA-Public Use
  Company Number: US-GLAXOSMITHKLINE-A0959704A

PATIENT
  Age: 43 Year

DRUGS (3)
  1. ROPINIROLE HYDROCHLORIDE [Suspect]
  2. REQUIP [Suspect]
     Indication: RESTLESS LEGS SYNDROME
     Route: 065
  3. HORIZANT [Concomitant]
     Indication: PRODUCT USED FOR UNKNOWN INDICATION
     Dosage: 600MG PER DAY
     Dates: start: 20110101

REACTIONS (7)
  - MALAISE [None]
  - ADVERSE EVENT [None]
  - COLD SWEAT [None]
  - NAUSEA [None]
  - NASAL OEDEMA [None]
  - LETHARGY [None]
  - HYPERHIDROSIS [None]
